FAERS Safety Report 9430469 (Version 1)
Quarter: 2013Q3

REPORT INFORMATION
  Report Type: Report from Study
  Country: US (occurrence: US)
  Receive Date: 20130730
  Receipt Date: 20130730
  Transmission Date: 20140515
  Serious: No
  Sender: FDA-Public Use
  Company Number: US-ABBOTT-13P-163-1085424-00

PATIENT
  Age: 65 Year
  Sex: Female
  Weight: 64.47 kg

DRUGS (6)
  1. NIASPAN (COATED) [Suspect]
     Indication: C-REACTIVE PROTEIN ABNORMAL
     Dates: start: 20130501
  2. NIASPAN (COATED) [Suspect]
     Indication: CARDIAC STRESS TEST ABNORMAL
  3. NEXIUM [Concomitant]
     Indication: PRODUCT USED FOR UNKNOWN INDICATION
  4. PREMARIN [Concomitant]
     Indication: PRODUCT USED FOR UNKNOWN INDICATION
  5. CITALOPRAM [Concomitant]
     Indication: PRODUCT USED FOR UNKNOWN INDICATION
  6. LOTS OF SUPPLEMENTS [Concomitant]
     Indication: PRODUCT USED FOR UNKNOWN INDICATION

REACTIONS (1)
  - Pruritus [Recovered/Resolved]
